FAERS Safety Report 12243487 (Version 3)
Quarter: 2016Q2

REPORT INFORMATION
  Report Type: Spontaneous
  Country: US (occurrence: US)
  Receive Date: 20160406
  Receipt Date: 20160525
  Transmission Date: 20160815
  Serious: No
  Sender: FDA-Public Use
  Company Number: US-GLAXOSMITHKLINE-US2016044789

PATIENT
  Age: 77 Year
  Sex: Female

DRUGS (1)
  1. ABREVA [Suspect]
     Active Substance: DOCOSANOL
     Indication: ORAL HERPES
     Dosage: UNK
     Dates: start: 20160315, end: 20160323

REACTIONS (4)
  - Oral herpes [Recovered/Resolved]
  - Lip pain [Recovered/Resolved]
  - Incorrect drug administration duration [Unknown]
  - Condition aggravated [Recovered/Resolved]
